FAERS Safety Report 13932464 (Version 1)
Quarter: 2017Q3

REPORT INFORMATION
  Report Type: Spontaneous
  Country: JP (occurrence: JP)
  Receive Date: 20170904
  Receipt Date: 20170904
  Transmission Date: 20171127
  Serious: Yes (Hospitalization, Other)
  Sender: FDA-Public Use
  Company Number: JP-ACCORD-057971

PATIENT
  Age: 69 Year
  Sex: Male

DRUGS (3)
  1. TS-1 [Suspect]
     Active Substance: GIMERACIL\OTERACIL\TEGAFUR
     Indication: PANCREATIC CARCINOMA
  2. GEMCITABINE/GEMCITABINE HYDROCHLORIDE [Suspect]
     Active Substance: GEMCITABINE\GEMCITABINE HYDROCHLORIDE
     Indication: PANCREATIC CARCINOMA
  3. NAVELBINE [Suspect]
     Active Substance: VINORELBINE TARTRATE
     Indication: PANCREATIC CARCINOMA

REACTIONS (2)
  - Febrile neutropenia [Recovered/Resolved]
  - Pneumonia pseudomonal [Recovering/Resolving]
